FAERS Safety Report 8036633-3 (Version None)
Quarter: 2012Q1

REPORT INFORMATION
  Report Type: 
  Country: None (occurrence: None)
  Receive Date: 20120109
  Receipt Date: 20111220
  Transmission Date: 20120608
  Serious: Yes (Congenital Anomaly)
  Sender: FDA-Public Use
  Company Number: ADR-5035-044

PATIENT
  Sex: Male
  Weight: 3.7 kg

DRUGS (1)
  1. TENOFOVIR DISOPROXIL FUMARATE [Suspect]
     Indication: ACQUIRED IMMUNODEFICIENCY SYNDROME
     Dosage: 300 MG/DAY + ORAL
     Route: 048
     Dates: start: 20091124, end: 20100831

REACTIONS (5)
  - TOOTH DEVELOPMENT DISORDER [None]
  - POLYDACTYLY [None]
  - MATERNAL DRUGS AFFECTING FOETUS [None]
  - ANKYLOGLOSSIA CONGENITAL [None]
  - PAPULE [None]
